FAERS Safety Report 22129436 (Version 5)
Quarter: 2023Q2

REPORT INFORMATION
  Report Type: Spontaneous
  Country: US (occurrence: US)
  Receive Date: 20230323
  Receipt Date: 20230513
  Transmission Date: 20230721
  Serious: No
  Sender: FDA-Public Use
  Company Number: US-UNITED THERAPEUTICS-UNT-2023-007985

PATIENT
  Age: 52 Year
  Sex: Male
  Weight: 97.506 kg

DRUGS (5)
  1. REMODULIN [Suspect]
     Active Substance: TREPROSTINIL
     Indication: Pulmonary arterial hypertension
     Dosage: 0.028 ?G/KG, (SELF-FILL WITH 2.8 ML PER CASSETTE; AT A RATE OF 32 MCL PER HOUR)  CONTINUING
     Route: 058
  2. REMODULIN [Suspect]
     Active Substance: TREPROSTINIL
     Dosage: 0.033 ?G/KG (SELF-FILL CASSETTE WITH 3 ML; PUMP RATE OF 38 MCL PER HOUR), CONTINUING
     Route: 058
  3. REMODULIN [Suspect]
     Active Substance: TREPROSTINIL
     Dosage: UNK, CONTINUING
     Route: 058
     Dates: start: 20221025
  4. AMBRISENTAN [Concomitant]
     Active Substance: AMBRISENTAN
     Indication: Product used for unknown indication
     Route: 065
  5. SILDENAFIL [Concomitant]
     Active Substance: SILDENAFIL
     Indication: Product used for unknown indication
     Route: 065

REACTIONS (6)
  - Infusion site haemorrhage [Unknown]
  - Device maintenance issue [Unknown]
  - Infusion site erythema [Unknown]
  - Infusion site pain [Unknown]
  - Device failure [Unknown]
  - Device placement issue [Unknown]

NARRATIVE: CASE EVENT DATE: 20230301
